FAERS Safety Report 5541508-5 (Version None)
Quarter: 2007Q4

REPORT INFORMATION
  Report Type: 
  Country: None (occurrence: None)
  Receive Date: 20071210
  Receipt Date: 20071202
  Transmission Date: 20080405
  Serious: Yes (Hospitalization, Other)
  Sender: FDA-Public Use
  Company Number: PT-BRISTOL-MYERS SQUIBB COMPANY-14000525

PATIENT
  Age: 32 Year
  Sex: Female

DRUGS (5)
  1. LYSODREN [Suspect]
     Indication: ADRENOCORTICAL CARCINOMA
     Dosage: DAILY DOSE-ADJUSTED IN ACCORDANCE WITH PLASMA
     Route: 048
     Dates: end: 20071123
  2. MORPHINE SULFATE [Suspect]
     Indication: PELVIC PAIN
  3. METOCLOPRAMIDE [Concomitant]
     Indication: NAUSEA
  4. ACENOCOUMAROL [Concomitant]
  5. ONDANSETRON [Concomitant]

REACTIONS (7)
  - DIPLOPIA [None]
  - DRUG LEVEL ABOVE THERAPEUTIC [None]
  - GAIT DISTURBANCE [None]
  - NEUROLOGICAL SYMPTOM [None]
  - PELVIC PAIN [None]
  - TUMOUR NECROSIS [None]
  - VOMITING [None]
